FAERS Safety Report 14858686 (Version 2)
Quarter: 2018Q2

REPORT INFORMATION
  Report Type: Spontaneous
  Country: BR (occurrence: BR)
  Receive Date: 20180508
  Receipt Date: 20180515
  Transmission Date: 20180711
  Serious: Yes (Hospitalization, Other)
  Sender: FDA-Public Use
  Company Number: BR-B.I. PHARMACEUTICALS,INC./RIDGEFIELD-2018-BI-024557

PATIENT
  Age: 59 Year
  Sex: Male
  Weight: 58 kg

DRUGS (5)
  1. LOSARTANA [Concomitant]
     Active Substance: LOSARTAN
     Indication: HYPERTENSION
     Route: 048
     Dates: start: 201802
  2. ATENSINA [Suspect]
     Active Substance: CLONIDINE
     Indication: HYPERTENSION
     Route: 048
     Dates: end: 201804
  3. ATENSINA [Suspect]
     Active Substance: CLONIDINE
     Route: 048
  4. REGULAR INSULIN [Concomitant]
     Active Substance: INSULIN NOS
     Indication: DIABETES MELLITUS
     Dosage: UNIT DOSE: 4IU; 8 IU
     Route: 058
     Dates: start: 2015
  5. NPH INSULIN [Concomitant]
     Active Substance: INSULIN BEEF
     Indication: DIABETES MELLITUS
     Dosage: DAILY DOSE: 10 IU (IF NECESSARY)
     Route: 058
     Dates: start: 2015

REACTIONS (4)
  - Blood pressure increased [Recovered/Resolved]
  - Blood pressure increased [Not Recovered/Not Resolved]
  - Renal failure [Recovered/Resolved]
  - Cholelithiasis [Recovered/Resolved]

NARRATIVE: CASE EVENT DATE: 201202
